FAERS Safety Report 12265714 (Version 1)
Quarter: 2016Q2

REPORT INFORMATION
  Report Type: Report from Study
  Country: US (occurrence: US)
  Receive Date: 20160413
  Receipt Date: 20160413
  Transmission Date: 20160815
  Serious: Yes (Hospitalization)
  Sender: FDA-Public Use
  Company Number: US-ACTELION-A-US2016-134301

PATIENT
  Age: 50 Year
  Sex: Female

DRUGS (2)
  1. MACITENTAN [Suspect]
     Active Substance: MACITENTAN
     Indication: PULMONARY ARTERIAL HYPERTENSION
     Dosage: 10 MG, QD
     Route: 048
  2. ADCIRCA [Concomitant]
     Active Substance: TADALAFIL

REACTIONS (10)
  - Pulmonary hypertension [Unknown]
  - Asthenia [Unknown]
  - Myocardial infarction [Unknown]
  - Fluid retention [Unknown]
  - No therapeutic response [Unknown]
  - Dyspnoea [Unknown]
  - Cough [Unknown]
  - Liver disorder [Unknown]
  - Condition aggravated [Unknown]
  - Oxygen saturation decreased [Unknown]
